FAERS Safety Report 12963966 (Version 1)
Quarter: 2016Q4

REPORT INFORMATION
  Report Type: Spontaneous
  Country: JP (occurrence: JP)
  Receive Date: 20161122
  Receipt Date: 20161122
  Transmission Date: 20170207
  Serious: Yes (Death)
  Sender: FDA-Public Use
  Company Number: JP-FRESENIUS KABI-FK201609050

PATIENT
  Age: 81 Year
  Sex: Male

DRUGS (4)
  1. AZOSEMIDE [Suspect]
     Active Substance: AZOSEMIDE
     Indication: ASCITES
     Route: 065
  2. TOLVAPTAN [Suspect]
     Active Substance: TOLVAPTAN
     Indication: ASCITES
     Route: 065
  3. FUROSEMIDE (MANUFACTURER UNKNOWN) [Suspect]
     Active Substance: FUROSEMIDE
     Indication: ASCITES
     Route: 065
  4. SPIRONOLACTONE. [Suspect]
     Active Substance: SPIRONOLACTONE
     Indication: ASCITES
     Route: 065

REACTIONS (1)
  - Haemorrhagic infarction [Fatal]
